FAERS Safety Report 16691512 (Version 3)
Quarter: 2020Q3

REPORT INFORMATION
  Report Type: Report from Study
  Country: CZ (occurrence: CZ)
  Receive Date: 20190812
  Receipt Date: 20200128
  Transmission Date: 20201105
  Serious: Yes (Hospitalization)
  Sender: FDA-Public Use
  Company Number: CZ-ROCHE-2310006

PATIENT
  Age: 69 Year
  Sex: Female
  Weight: 109 kg

DRUGS (53)
  1. SOLU?MEDROL [Concomitant]
     Active Substance: METHYLPREDNISOLONE SODIUM SUCCINATE
     Dosage: PRE?TREATMENT
     Route: 042
     Dates: start: 20190329, end: 20190404
  2. SALINE [SODIUM CHLORIDE] [Concomitant]
     Active Substance: SODIUM CHLORIDE
     Indication: PROPHYLAXIS
     Route: 042
     Dates: start: 20190329, end: 20190405
  3. GERATAM [Concomitant]
     Indication: CEREBROVASCULAR ACCIDENT PROPHYLAXIS
     Route: 048
     Dates: start: 2015
  4. MILURIT [Concomitant]
     Active Substance: ALLOPURINOL
     Indication: HYPERTENSION
     Route: 048
     Dates: start: 20190313, end: 20190425
  5. ZARZIO [Concomitant]
     Active Substance: FILGRASTIM
     Indication: NEUTROPENIA
     Route: 058
     Dates: start: 20190504, end: 20190510
  6. CONTROLOC [Concomitant]
     Active Substance: PANTOPRAZOLE SODIUM
     Indication: DYSPEPSIA
     Route: 048
     Dates: start: 20190329, end: 20190405
  7. NOVALGIN (METAMIZOLE SODIUM) [Concomitant]
     Active Substance: METAMIZOLE SODIUM
     Indication: HEADACHE
     Route: 042
     Dates: start: 20190502, end: 20190502
  8. TORECAN [Concomitant]
     Active Substance: THIETHYLPERAZINE MALATE
     Indication: NAUSEA
     Route: 042
     Dates: start: 20190512, end: 20190512
  9. FLUCONAZOL [Concomitant]
     Active Substance: FLUCONAZOLE
     Route: 048
     Dates: start: 20190506, end: 20190513
  10. FURON [FUROSEMIDE] [Concomitant]
     Active Substance: FUROSEMIDE
     Route: 048
     Dates: start: 20190523, end: 20190523
  11. PLACEBO [Suspect]
     Active Substance: UNSPECIFIED INGREDIENT
     Indication: DIFFUSE LARGE B-CELL LYMPHOMA
     Dosage: DATE OF MOST RECENT DOSE OF BLINDED VINCRISTINE PRIOR TO SAE ONSET: 05/APR/2019
     Route: 042
     Dates: start: 20190405
  12. PRADAXA [Concomitant]
     Active Substance: DABIGATRAN ETEXILATE MESYLATE
     Indication: CEREBROVASCULAR ACCIDENT PROPHYLAXIS
     Route: 048
     Dates: start: 2015, end: 20190331
  13. NOVOMIX [Concomitant]
     Active Substance: INSULIN ASPART
     Indication: DIABETES MELLITUS
     Route: 058
     Dates: start: 2010
  14. LOKREN [Concomitant]
     Active Substance: BETAXOLOL HYDROCHLORIDE
     Indication: HYPERTENSION
     Route: 048
     Dates: start: 20190330
  15. VALACICLOVIR [Concomitant]
     Active Substance: VALACYCLOVIR HYDROCHLORIDE
     Indication: ANTIVIRAL PROPHYLAXIS
     Route: 048
     Dates: start: 20190329
  16. FUROSEMIDE. [Concomitant]
     Active Substance: FUROSEMIDE
     Dosage: HYPERKALEMIA PROPHYLAXIS
     Route: 042
     Dates: start: 20190330, end: 20190409
  17. RITUXIMAB. [Suspect]
     Active Substance: RITUXIMAB
     Indication: DIFFUSE LARGE B-CELL LYMPHOMA
     Dosage: DATE OF MOST RECENT DOSE OF RITUXIMAB PRIOR TO SAE ONSET: 05/APR/2019 (830 MG)
     Route: 041
     Dates: start: 20190405
  18. DOXORUBICIN [Suspect]
     Active Substance: DOXORUBICIN
     Indication: DIFFUSE LARGE B-CELL LYMPHOMA
     Dosage: DATE OF MOST RECENT DOSE OF DOXORUBICIN PRIOR TO SAE ONSET: 05/APR/2019 (106 MG)
     Route: 042
     Dates: start: 20190405
  19. CYCLOPHOSPHAMIDE. [Suspect]
     Active Substance: CYCLOPHOSPHAMIDE
     Indication: DIFFUSE LARGE B-CELL LYMPHOMA
     Dosage: DATE OF MOST RECENT DOSE OF CYCLOPHOSPHAMIDE PRIOR TO SAE ONSET: 05/APR/2019 (1590 MG)
     Route: 042
     Dates: start: 20190405
  20. ZARZIO [Concomitant]
     Active Substance: FILGRASTIM
     Route: 042
     Dates: start: 20190525, end: 20190603
  21. CONTROLOC [Concomitant]
     Active Substance: PANTOPRAZOLE SODIUM
     Route: 048
     Dates: start: 20190406, end: 20190410
  22. CALCIUM RESONIUM [Concomitant]
     Dosage: PROPHYLAXIS OF HYPERKALEMIA
     Route: 054
     Dates: start: 20190331, end: 20190331
  23. ONDANSETRON [Concomitant]
     Active Substance: ONDANSETRON
     Route: 042
     Dates: start: 20190428, end: 20190428
  24. SANVAL [Concomitant]
     Active Substance: ZOLPIDEM TARTRATE
     Indication: INSOMNIA
     Route: 048
     Dates: start: 20190503, end: 20190503
  25. LEXAURIN [Concomitant]
     Active Substance: BROMAZEPAM
     Indication: ANXIETY
     Route: 048
     Dates: start: 20190504, end: 20190505
  26. SIOFOR [Concomitant]
     Active Substance: METFORMIN HYDROCHLORIDE
     Indication: DIABETES MELLITUS
     Route: 048
  27. STADAMET [Concomitant]
     Active Substance: METFORMIN HYDROCHLORIDE
     Indication: DIABETES MELLITUS
     Route: 048
     Dates: start: 20190403
  28. CONTROLOC [Concomitant]
     Active Substance: PANTOPRAZOLE SODIUM
     Route: 048
     Dates: start: 20190523, end: 20190604
  29. POLATUZUMAB VEDOTIN. [Suspect]
     Active Substance: POLATUZUMAB VEDOTIN
     Indication: DIFFUSE LARGE B-CELL LYMPHOMA
     Dosage: DATE OF MOST RECENT DOSE OF BLINDED POLATUZUMAB VEDOTIN PRIOR TO SAE ONSET: 05/APR/2019
     Route: 042
     Dates: start: 20190405
  30. PREDNISONE. [Suspect]
     Active Substance: PREDNISONE
     Indication: DIFFUSE LARGE B-CELL LYMPHOMA
     Dosage: DATE OF MOST RECENT DOSE OF PREDNISONE PRIOR TO SAE ONSET: 09/APR/2019 (100 MG)
     Route: 048
     Dates: start: 20190405
  31. HUMULIN R [Concomitant]
     Active Substance: INSULIN HUMAN
     Indication: DIABETES MELLITUS
     Route: 058
     Dates: start: 20190331, end: 20190409
  32. FRAXIPARINE [Concomitant]
     Active Substance: NADROPARIN CALCIUM
     Dosage: THROMBOEMBOLIC EVENT PROPHYLAXIS
     Route: 058
     Dates: start: 20190401, end: 20190410
  33. ONDANSETRON [Concomitant]
     Active Substance: ONDANSETRON
     Indication: NAUSEA
     Route: 042
     Dates: start: 20190405, end: 20190729
  34. OXAZEPAM. [Concomitant]
     Active Substance: OXAZEPAM
     Indication: INSOMNIA
     Route: 048
     Dates: start: 20190425, end: 20190502
  35. KALNORMIN [Concomitant]
     Active Substance: POTASSIUM CHLORIDE
     Route: 048
     Dates: start: 20190515, end: 20190520
  36. HELICID [OMEPRAZOLE] [Concomitant]
     Active Substance: OMEPRAZOLE
     Indication: DYSPEPSIA
     Route: 048
     Dates: start: 2015, end: 20190328
  37. FUROSEMIDE. [Concomitant]
     Active Substance: FUROSEMIDE
     Route: 042
     Dates: start: 20190429, end: 20190429
  38. COTRIMOXAZOLE [Concomitant]
     Active Substance: SULFAMETHOXAZOLE\TRIMETHOPRIM
     Indication: INFECTION PROPHYLAXIS
     Route: 048
     Dates: start: 20190330
  39. PIPERACILLIN/TAZOBACTAM [Concomitant]
     Active Substance: PIPERACILLIN SODIUM\TAZOBACTAM SODIUM
     Dosage: 1 UNIT OF PIPERACILLIN 4 G/TAZOBACTAM 0.5 G
     Route: 042
     Dates: start: 20190506, end: 20190510
  40. MAGNESIUM SULFATE. [Concomitant]
     Active Substance: MAGNESIUM SULFATE
     Route: 042
     Dates: start: 20190428, end: 20190603
  41. ZARZIO [Concomitant]
     Active Substance: FILGRASTIM
     Indication: PROPHYLAXIS
     Route: 058
     Dates: start: 20190410, end: 20190414
  42. MAGNESIUM LACTATE [Concomitant]
     Active Substance: MAGNESIUM LACTATE
     Route: 048
     Dates: start: 20190524
  43. FUROSEMIDE. [Concomitant]
     Active Substance: FUROSEMIDE
     Route: 042
     Dates: start: 20190512, end: 20190514
  44. PROTAMIN SULFATE [Concomitant]
     Active Substance: PROTAMINE SULFATE
     Dosage: TREATMENT OF BLEEDING
     Route: 042
     Dates: start: 20190408, end: 20190408
  45. MESOCAINE [Concomitant]
     Active Substance: LIDOCAINE HYDROCHLORIDE
     Dosage: ANESTHETICS BEFORE VENOUS ACCESS IMPLANTATION
     Route: 030
     Dates: start: 20190405, end: 20190405
  46. BETADINE [Concomitant]
     Active Substance: POVIDONE-IODINE
     Route: 061
     Dates: start: 20190506, end: 20190520
  47. GRANDAXIN [Concomitant]
     Active Substance: TOFISOPAM
     Indication: ANXIETY
     Route: 048
     Dates: start: 20190602, end: 20190604
  48. PARACETAMOL [Concomitant]
     Active Substance: ACETAMINOPHEN
     Route: 048
     Dates: start: 20190405, end: 20190910
  49. CALCICHEW [Concomitant]
     Active Substance: CALCIUM CARBONATE
     Route: 048
     Dates: start: 20190425
  50. KCL [Concomitant]
     Active Substance: POTASSIUM CHLORIDE
     Route: 042
     Dates: start: 20190508, end: 20190603
  51. MAGNESIUM LACTATE [Concomitant]
     Active Substance: MAGNESIUM LACTATE
     Indication: PROPHYLAXIS
     Route: 048
     Dates: start: 20190405
  52. DITHIADEN [Concomitant]
     Active Substance: BISULEPIN
     Route: 042
     Dates: start: 20190405, end: 20190910
  53. MEROPENEMUM [Concomitant]
     Route: 050
     Dates: start: 20190510, end: 20190520

REACTIONS (2)
  - Peripheral embolism [Recovered/Resolved]
  - Infection [Recovered/Resolved]

NARRATIVE: CASE EVENT DATE: 20190419
